FAERS Safety Report 5147758-4 (Version None)
Quarter: 2006Q4

REPORT INFORMATION
  Report Type: 
  Country: None (occurrence: None)
  Receive Date: 20061110
  Receipt Date: 20061031
  Transmission Date: 20070319
  Serious: Yes (Other)
  Sender: FDA-Public Use
  Company Number: PHHO2006CL18133

PATIENT
  Age: 39 Year
  Sex: Female

DRUGS (1)
  1. ZELMAC / HTF 919A [Suspect]
     Dosage: UNK, QD
     Route: 048
     Dates: start: 20060901

REACTIONS (2)
  - CHOLELITHIASIS [None]
  - CHOLELITHOTOMY [None]
